FAERS Safety Report 6909799-3 (Version None)
Quarter: 2010Q3

REPORT INFORMATION
  Report Type: 
  Country: None (occurrence: None)
  Receive Date: 20100806
  Receipt Date: 20100727
  Transmission Date: 20110219
  Serious: No
  Sender: FDA-Public Use
  Company Number: US-BIOGENIDEC-2010BI016029

PATIENT
  Sex: Female

DRUGS (2)
  1. TYSABRI [Suspect]
     Indication: MULTIPLE SCLEROSIS
     Route: 042
     Dates: start: 20080214, end: 20100405
  2. NSAID [Concomitant]

REACTIONS (6)
  - ABDOMINAL DISCOMFORT [None]
  - CYSTITIS [None]
  - FATIGUE [None]
  - PYREXIA [None]
  - VERTIGO [None]
  - VIRAL INFECTION [None]
